FAERS Safety Report 6309221-4 (Version None)
Quarter: 2009Q3

REPORT INFORMATION
  Report Type: 
  Country: None (occurrence: None)
  Receive Date: 20090814
  Receipt Date: 20090803
  Transmission Date: 20100115
  Serious: Yes (Other)
  Sender: FDA-Public Use
  Company Number: US-PFIZER INC-2009238290

PATIENT
  Age: 29 Year
  Sex: Female

DRUGS (2)
  1. DILANTIN-125 [Suspect]
     Indication: EPILEPSY
     Dosage: 300 MG, 1X/DAY
     Route: 050
  2. PROZAC [Concomitant]
     Dosage: UNK
     Route: 050

REACTIONS (1)
  - ABORTION SPONTANEOUS [None]
